FAERS Safety Report 5116697-7 (Version None)
Quarter: 2006Q3

REPORT INFORMATION
  Report Type: 
  Country: None (occurrence: None)
  Receive Date: 20060928
  Receipt Date: 20060605
  Transmission Date: 20061208
  Serious: Yes (Hospitalization)
  Sender: FDA-Public Use
  Company Number: US-ROCHE-450885

PATIENT
  Age: 44 Year
  Sex: Male
  Weight: 71.2 kg

DRUGS (17)
  1. PEGASYS [Suspect]
     Indication: HEPATITIS C
     Route: 065
     Dates: start: 20050106, end: 20050915
  2. PEGASYS [Suspect]
     Route: 065
     Dates: start: 20060208
  3. RIBAVIRIN [Suspect]
     Indication: HEPATITIS C
     Route: 065
     Dates: start: 20050106, end: 20050915
  4. RIBAVIRIN [Suspect]
     Route: 065
     Dates: start: 20060208, end: 20060421
  5. PROCRIT [Suspect]
     Indication: NEPHROGENIC ANAEMIA
     Route: 058
     Dates: start: 20050315, end: 20050915
  6. PROCRIT [Suspect]
     Route: 058
     Dates: start: 20060208, end: 20060428
  7. PROCRIT [Suspect]
     Route: 058
     Dates: start: 20060501
  8. COREG [Concomitant]
  9. REMERON [Concomitant]
  10. RISPERDAL [Concomitant]
  11. COUMADIN [Concomitant]
     Dates: start: 20060315
  12. FOLIC ACID [Concomitant]
  13. LOVASTATIN [Concomitant]
  14. DIOVAN [Concomitant]
  15. PRAZOSIN HCL [Concomitant]
  16. HYDROCHLOROTHIAZDE TAB [Concomitant]
  17. FESO4 [Concomitant]

REACTIONS (8)
  - ANAEMIA [None]
  - APLASIA PURE RED CELL [None]
  - CEREBROVASCULAR ACCIDENT [None]
  - DRUG INEFFECTIVE [None]
  - FATIGUE [None]
  - IRON DEFICIENCY [None]
  - RENAL FAILURE CHRONIC [None]
  - THERAPEUTIC RESPONSE DECREASED [None]
